FAERS Safety Report 14204343 (Version 1)
Quarter: 2017Q4

REPORT INFORMATION
  Report Type: Spontaneous
  Country: FR (occurrence: FR)
  Receive Date: 20171120
  Receipt Date: 20171120
  Transmission Date: 20180321
  Serious: Yes (Other)
  Sender: FDA-Public Use
  Company Number: FR-MERCK KGAA-2034647

PATIENT
  Sex: Female

DRUGS (1)
  1. NOVOTHYROX [Suspect]
     Active Substance: LEVOTHYROXINE SODIUM
     Indication: PRODUCT USED FOR UNKNOWN INDICATION
     Dates: start: 2017, end: 201709

REACTIONS (24)
  - Malaise [Recovering/Resolving]
  - Hypotonia [Recovering/Resolving]
  - Hypokinesia [Recovering/Resolving]
  - Paraesthesia [Recovering/Resolving]
  - Migraine [Recovering/Resolving]
  - White blood cell count increased [Recovering/Resolving]
  - Somnolence [Recovering/Resolving]
  - Tachycardia [Recovering/Resolving]
  - Diarrhoea [Recovering/Resolving]
  - Paralysis [Recovering/Resolving]
  - Cerebrovascular accident [Recovering/Resolving]
  - Back pain [Recovering/Resolving]
  - Tinea pedis [Recovering/Resolving]
  - Weight increased [Recovering/Resolving]
  - Tinnitus [Recovering/Resolving]
  - Asthenia [Recovering/Resolving]
  - Pain [Recovering/Resolving]
  - Headache [Recovering/Resolving]
  - Pain in extremity [Recovering/Resolving]
  - Hypertension [Recovering/Resolving]
  - Spinal column stenosis [Recovering/Resolving]
  - Dry eye [Recovered/Resolved]
  - Fatigue [Recovering/Resolving]
  - Head discomfort [Recovering/Resolving]

NARRATIVE: CASE EVENT DATE: 2017
